FAERS Safety Report 24097945 (Version 6)
Quarter: 2024Q4

REPORT INFORMATION
  Report Type: Spontaneous
  Country: PT (occurrence: PT)
  Receive Date: 20240716
  Receipt Date: 20241205
  Transmission Date: 20250115
  Serious: No
  Sender: PFIZER
  Company Number: PT-PFIZER INC-PV202400092307

PATIENT
  Sex: Female

DRUGS (1)
  1. NIMENRIX [Suspect]
     Active Substance: CLOSTRIDIUM TETANI TOXOID ANTIGEN (FORMALDEHYDE INACTIVATED)\MENINGOCOCCAL POLYSACCHARIDE VACCINE, G
     Indication: Immunisation
     Dosage: DOSE NUMBER UNKNOWN, SINGLE
     Dates: start: 20240711, end: 20240711

REACTIONS (6)
  - Vaccination site inflammation [Unknown]
  - Vaccination site oedema [Unknown]
  - Vaccination site erythema [Unknown]
  - Vaccination site warmth [Unknown]
  - Vaccination site pain [Unknown]
  - Vaccination site cellulitis [Unknown]

NARRATIVE: CASE EVENT DATE: 20240712
